FAERS Safety Report 8105160-7 (Version None)
Quarter: 2012Q1

REPORT INFORMATION
  Report Type: 
  Country: None (occurrence: None)
  Receive Date: 20120201
  Receipt Date: 20120124
  Transmission Date: 20120608
  Serious: No
  Sender: FDA-Public Use
  Company Number: US-B.I. PHARMACEUTICALS,INC./RIDGEFIELD-2011-BP-06862BP

PATIENT
  Sex: Male
  Weight: 77.11 kg

DRUGS (5)
  1. NORVASC [Concomitant]
     Indication: HYPERTENSION
  2. VASOTEC [Concomitant]
  3. PRADAXA [Suspect]
     Indication: ATRIAL FIBRILLATION
     Dosage: 300 MG
     Dates: start: 20110201, end: 20120101
  4. SIMVASTATIN [Concomitant]
  5. ATENOLOL [Concomitant]
     Dates: start: 20050101

REACTIONS (4)
  - PRURITUS [None]
  - DECREASED APPETITE [None]
  - DIARRHOEA [None]
  - RASH PRURITIC [None]
